FAERS Safety Report 17083849 (Version 1)
Quarter: 2019Q4

REPORT INFORMATION
  Report Type: Spontaneous
  Country: CN (occurrence: CN)
  Receive Date: 20191127
  Receipt Date: 20191127
  Transmission Date: 20200122
  Serious: Yes (Other)
  Sender: FDA-Public Use
  Company Number: CN-PFIZER INC-2019509744

PATIENT
  Age: 50 Year
  Sex: Male
  Weight: 68 kg

DRUGS (3)
  1. CEFOPERAZONE SODIUM [Suspect]
     Active Substance: CEFOPERAZONE SODIUM
     Indication: PYREXIA
     Dosage: 2 G, 2X/DAY
     Route: 041
     Dates: start: 20191110, end: 20191113
  2. CEFOPERAZONE SODIUM [Suspect]
     Active Substance: CEFOPERAZONE SODIUM
     Indication: ANTIINFLAMMATORY THERAPY
  3. CEFOPERAZONE SODIUM [Suspect]
     Active Substance: CEFOPERAZONE SODIUM
     Indication: PNEUMONIA

REACTIONS (2)
  - Yellow skin [Recovering/Resolving]
  - Blood bilirubin abnormal [Recovering/Resolving]

NARRATIVE: CASE EVENT DATE: 20191112
